FAERS Safety Report 9932670 (Version 2)
Quarter: 2014Q1

REPORT INFORMATION
  Report Type: Spontaneous
  Country: GB (occurrence: None)
  Receive Date: 20140226
  Receipt Date: 20140305
  Transmission Date: 20141002
  Serious: Yes (Other)
  Sender: FDA-Public Use
  Company Number: AUR-APL-2014-01876

PATIENT
  Age: 74 Year
  Sex: Male
  Weight: 70.8 kg

DRUGS (9)
  1. RAMIPRIL [Suspect]
     Indication: HYPERTENSION
     Dates: start: 20131209
  2. ATENOLOL [Concomitant]
  3. BENDROFLUMETHIAZIDE [Concomitant]
  4. CO-CODAMOL [Concomitant]
  5. DUTASTERIDE [Concomitant]
  6. OMEPRAZOLE [Concomitant]
  7. PHENOXYMETHYLPENICILLIN [Concomitant]
  8. SILDENAFIL [Concomitant]
  9. TAMSULOSIN HYDROCHLORIDE [Concomitant]

REACTIONS (2)
  - Abdominal distension [None]
  - Dyspepsia [None]
